FAERS Safety Report 19520775 (Version 2)
Quarter: 2022Q1

REPORT INFORMATION
  Report Type: Spontaneous
  Country: GB (occurrence: GB)
  Receive Date: 20210712
  Receipt Date: 20220330
  Transmission Date: 20220423
  Serious: Yes (Other)
  Sender: FDA-Public Use
  Company Number: None

PATIENT
  Age: 65 Year
  Sex: Female
  Weight: 89 kg

DRUGS (1)
  1. DOXYCYCLINE [Suspect]
     Active Substance: DOXYCYCLINE
     Indication: Arthropod bite
     Dosage: 100 MG, 2X/DAY
     Route: 048
     Dates: start: 20210619, end: 20210623

REACTIONS (6)
  - Gastrooesophageal reflux disease [Not Recovered/Not Resolved]
  - Tachycardia [Unknown]
  - Photophobia [Unknown]
  - Visual impairment [Unknown]
  - Skin burning sensation [Unknown]
  - Photopsia [Unknown]

NARRATIVE: CASE EVENT DATE: 20210619
